FAERS Safety Report 18435897 (Version 1)
Quarter: 2020Q4

REPORT INFORMATION
  Report Type: Other
  Country: US (occurrence: PE)
  Receive Date: 20201028
  Receipt Date: 20201028
  Transmission Date: 20210114
  Serious: Yes (Death)
  Sender: FDA-Public Use
  Company Number: US-ROCHE-2702260

PATIENT

DRUGS (1)
  1. ALTEPLASE. [Suspect]
     Active Substance: ALTEPLASE
     Indication: ISCHAEMIC STROKE
     Dosage: STANDARD DOSE OF 0.9 MG/KG OF IV-TPA WITH A MAXIMUM DOSE OF 90 MG.  FREQUENCY: 1, FREQUENCY UNIT: 80
     Route: 042

REACTIONS (2)
  - Acute pulmonary oedema [Fatal]
  - Cardiac failure [Fatal]
